FAERS Safety Report 7967669-6 (Version None)
Quarter: 2011Q4

REPORT INFORMATION
  Report Type: 
  Country: None (occurrence: None)
  Receive Date: 20111207
  Receipt Date: 20111202
  Transmission Date: 20120403
  Serious: Yes (Hospitalization)
  Sender: FDA-Public Use
  Company Number: 126984

PATIENT
  Age: 70 Year
  Sex: Male

DRUGS (1)
  1. LEUCOVORIN CALCIUM [Suspect]
     Indication: COLORECTAL CANCER METASTATIC
     Dosage: IV
     Route: 042
     Dates: start: 20111005, end: 20111018

REACTIONS (3)
  - NEPHROTIC SYNDROME [None]
  - PELVIC INFLAMMATORY DISEASE [None]
  - BLOOD PRESSURE INADEQUATELY CONTROLLED [None]
